FAERS Safety Report 9401878 (Version 2)
Quarter: 2013Q3

REPORT INFORMATION
  Report Type: Spontaneous
  Country: US (occurrence: US)
  Receive Date: 20130716
  Receipt Date: 20130822
  Transmission Date: 20140515
  Serious: Yes (Hospitalization)
  Sender: FDA-Public Use
  Company Number: US-ASTRAZENECA-2013SE51058

PATIENT
  Age: 800 Month
  Sex: Female
  Weight: 115.7 kg

DRUGS (5)
  1. SYMBICORT [Suspect]
     Indication: ASTHMA
     Route: 055
     Dates: start: 2009, end: 2011
  2. SYMBICORT [Suspect]
     Indication: CHRONIC OBSTRUCTIVE PULMONARY DISEASE
     Route: 055
     Dates: start: 2009, end: 2011
  3. SYMBICORT [Suspect]
     Indication: ASTHMA
     Dosage: 160/4.5 MCG TWO PUFFS BID
     Route: 055
     Dates: start: 2011, end: 201307
  4. SYMBICORT [Suspect]
     Indication: CHRONIC OBSTRUCTIVE PULMONARY DISEASE
     Dosage: 160/4.5 MCG TWO PUFFS BID
     Route: 055
     Dates: start: 2011, end: 201307
  5. ADVAIR [Concomitant]

REACTIONS (5)
  - Lung infection pseudomonal [Unknown]
  - Type 1 diabetes mellitus [Unknown]
  - Cough [Unknown]
  - Dysphonia [Unknown]
  - Drug dose omission [Unknown]
